FAERS Safety Report 15074245 (Version 1)
Quarter: 2018Q2

REPORT INFORMATION
  Report Type: Report from Study
  Country: DE (occurrence: DE)
  Receive Date: 20180627
  Receipt Date: 20180627
  Transmission Date: 20180711
  Serious: Yes (Hospitalization, Other)
  Sender: FDA-Public Use
  Company Number: DE-PFIZER INC-2018256328

PATIENT
  Age: 80 Year
  Sex: Male
  Weight: 60 kg

DRUGS (18)
  1. CARBOPLATIN. [Suspect]
     Active Substance: CARBOPLATIN
     Dosage: 552 MG, UNK
     Route: 042
     Dates: start: 20150306
  2. ZOFRAN [Concomitant]
     Active Substance: ONDANSETRON HYDROCHLORIDE
     Indication: NAUSEA
     Dosage: 8 MG, UNK
     Route: 042
     Dates: start: 20150306, end: 20150422
  3. PACLITAXEL. [Suspect]
     Active Substance: PACLITAXEL
     Dosage: 320 MG, OVER 180 MIN
     Route: 042
  4. SIMVASTATIN. [Concomitant]
     Active Substance: SIMVASTATIN
     Dosage: 0-0-1
     Route: 065
  5. TAVEGIL /00137201/ [Concomitant]
     Active Substance: CLEMASTINE FUMARATE
     Indication: HYPERSENSITIVITY
     Dosage: 30 MIN BEFORE CHEMOTHERAPY
     Route: 042
     Dates: start: 20150306, end: 20150422
  6. FORTECORTIN /00016001/ [Concomitant]
     Active Substance: DEXAMETHASONE
     Dosage: 8 MG, 1X/DAY
     Route: 048
     Dates: start: 20150307
  7. FORTECORTIN /00016001/ [Concomitant]
     Active Substance: DEXAMETHASONE
     Dosage: 20 MG, 1X/DAY, DAY 0: 0-0-1, DAY 1: 1-0-0
     Route: 048
     Dates: start: 20150305, end: 20150422
  8. PACLITAXEL. [Suspect]
     Active Substance: PACLITAXEL
     Indication: BRONCHIAL CARCINOMA
     Dosage: 334 MG, OVER 180 MIN
     Route: 042
     Dates: start: 20150306
  9. RANITIC [Concomitant]
     Active Substance: RANITIDINE HYDROCHLORIDE
     Indication: PREMEDICATION
     Dosage: 30 MIN BEFORE CHEMOTHERAPY
     Route: 042
     Dates: start: 20150306, end: 20150422
  10. CARBOPLATIN. [Suspect]
     Active Substance: CARBOPLATIN
     Indication: BRONCHIAL CARCINOMA
     Dosage: 348 MG, UNK
     Route: 042
     Dates: end: 20150422
  11. BEVACIZUMAB. [Suspect]
     Active Substance: BEVACIZUMAB
     Indication: BRONCHIAL CARCINOMA
     Dosage: 15 MG/KG, OVER 60 MIN
     Route: 042
     Dates: start: 20150306
  12. TAVEGIL /00137201/ [Concomitant]
     Active Substance: CLEMASTINE FUMARATE
     Indication: PREMEDICATION
  13. PANTOZOL [Concomitant]
     Active Substance: PANTOPRAZOLE SODIUM
     Indication: ABDOMINAL DISCOMFORT
     Dosage: 1-0-0
     Route: 048
  14. DELIX /00885601/ [Concomitant]
     Active Substance: RAMIPRIL
     Dosage: 1-0-1
     Route: 048
  15. FORTIMEL [Concomitant]
     Active Substance: DIETARY SUPPLEMENT
     Dosage: UNK UNK, 3X/DAY, 1-1-1
     Route: 065
     Dates: start: 20150520
  16. SPIRIVA [Concomitant]
     Active Substance: TIOTROPIUM BROMIDE MONOHYDRATE
     Dosage: 2-0-0
     Route: 045
  17. NOVAMINSULFON [Concomitant]
     Active Substance: METAMIZOLE
     Dosage: 30 GTT, 3X/DAY, 3X30 GTT
     Route: 065
     Dates: start: 20150521
  18. CLEXANE [Concomitant]
     Active Substance: ENOXAPARIN SODIUM
     Dosage: UNK UNK, 2X/DAY, 1-0-1
     Route: 065
     Dates: start: 20150422

REACTIONS (5)
  - Polyneuropathy [Not Recovered/Not Resolved]
  - Rash [Not Recovered/Not Resolved]
  - Epistaxis [Not Recovered/Not Resolved]
  - Venous thrombosis limb [Not Recovered/Not Resolved]
  - Headache [Not Recovered/Not Resolved]

NARRATIVE: CASE EVENT DATE: 20150331
